FAERS Safety Report 9171146 (Version 2)
Quarter: 2013Q2

REPORT INFORMATION
  Report Type: Spontaneous
  Country: US (occurrence: None)
  Receive Date: 20130312
  Receipt Date: 20130417
  Transmission Date: 20140414
  Serious: Yes (Hospitalization)
  Sender: FDA-Public Use
  Company Number: 138477

PATIENT
  Age: 63 Year
  Sex: Female
  Weight: 51 kg

DRUGS (1)
  1. LEUCOVORIN CALCIUM [Suspect]
     Indication: COLORECTAL CANCER METASTATIC
     Dosage: 400 MG/M2 INTRAVENOUSLY DAY 1 EVEN
     Route: 042
     Dates: start: 20111019, end: 20120801

REACTIONS (4)
  - Febrile neutropenia [None]
  - Diarrhoea [None]
  - Dehydration [None]
  - Clostridium test positive [None]
